FAERS Safety Report 7885490-4 (Version None)
Quarter: 2011Q4

REPORT INFORMATION
  Report Type: 
  Country: None (occurrence: None)
  Receive Date: 20111102
  Receipt Date: 20111026
  Transmission Date: 20120403
  Serious: Yes (Other)
  Sender: FDA-Public Use
  Company Number: FR-GILEAD-2011-0044311

PATIENT
  Sex: Male

DRUGS (7)
  1. BACTRIM [Concomitant]
     Dosage: UNK
     Dates: start: 20110501, end: 20110701
  2. LOVENOX [Concomitant]
     Dosage: 10000 DF, UNK
  3. TRUVADA [Suspect]
     Indication: HIV INFECTION
     Dosage: 1 DF, QD
     Route: 048
     Dates: start: 20110515, end: 20110825
  4. ISENTRESS [Suspect]
     Indication: HIV INFECTION
     Dosage: 400 MG, BID
     Route: 048
     Dates: start: 20110515
  5. KEPPRA [Concomitant]
     Dosage: 500 MG, UNK
     Dates: start: 20110501
  6. DEPAKENE [Concomitant]
     Dosage: 500 MG, UNK
  7. VALGANCICLOVIR [Concomitant]
     Dosage: 450 MG, BID
     Dates: start: 20110601

REACTIONS (2)
  - POLYDIPSIA [None]
  - POLYURIA [None]
